FAERS Safety Report 8561197-5 (Version None)
Quarter: 2012Q3

REPORT INFORMATION
  Report Type: 
  Country: None (occurrence: None)
  Receive Date: 20120802
  Receipt Date: 19830929
  Transmission Date: 20120928
  Serious: Yes (Hospitalization, Other)
  Sender: FDA-Public Use
  Company Number: US-009507513-83100014

PATIENT

DRUGS (2)
  1. CLINORIL [Suspect]
     Indication: NECK PAIN
     Dosage: 300 MG, BID
     Route: 048
     Dates: start: 19830801, end: 19830801
  2. MK-0130 [Concomitant]
     Indication: NECK PAIN
     Dosage: 30 MG, TID
     Route: 048
     Dates: start: 19830801, end: 19830801

REACTIONS (2)
  - GENERAL SYMPTOM [None]
  - GUILLAIN-BARRE SYNDROME [None]
